FAERS Safety Report 10087262 (Version 1)
Quarter: 2014Q2

REPORT INFORMATION
  Report Type: Spontaneous
  Country: AR (occurrence: AR)
  Receive Date: 20140418
  Receipt Date: 20140418
  Transmission Date: 20141212
  Serious: Yes (Death)
  Sender: FDA-Public Use
  Company Number: AR-ASTRAZENECA-2014SE26157

PATIENT
  Age: 68 Year
  Sex: Male

DRUGS (1)
  1. BRILINTA [Suspect]
     Indication: ANTIPLATELET THERAPY
     Dosage: DAILY
     Route: 048
     Dates: start: 201310, end: 20140402

REACTIONS (1)
  - Cardio-respiratory arrest [Fatal]
